FAERS Safety Report 5096475-8 (Version None)
Quarter: 2006Q3

REPORT INFORMATION
  Report Type: 
  Country: None (occurrence: None)
  Receive Date: 20060905
  Receipt Date: 20060828
  Transmission Date: 20061208
  Serious: Yes (Hospitalization)
  Sender: FDA-Public Use
  Company Number: US-SANOFI-SYNTHELABO-A03200605411

PATIENT
  Sex: Male

DRUGS (3)
  1. VORICONAZOLE [Suspect]
     Indication: FUNGAEMIA
     Dosage: UNK
     Route: 065
  2. PLAVIX [Suspect]
     Indication: MYOCARDIAL INFARCTION
     Route: 048
  3. ZOSYN [Suspect]
     Indication: SEPSIS
     Dosage: UNK
     Route: 042

REACTIONS (6)
  - ALANINE AMINOTRANSFERASE INCREASED [None]
  - ASPARTATE AMINOTRANSFERASE INCREASED [None]
  - BLOOD ALKALINE PHOSPHATASE INCREASED [None]
  - CHOLESTASIS [None]
  - HEPATIC FAILURE [None]
  - JAUNDICE [None]
